FAERS Safety Report 7423705-7 (Version None)
Quarter: 2011Q2

REPORT INFORMATION
  Report Type: 
  Country: None (occurrence: None)
  Receive Date: 20110411
  Receipt Date: 20110329
  Transmission Date: 20111010
  Serious: Yes (Hospitalization)
  Sender: FDA-Public Use
  Company Number: 1000018832

PATIENT
  Age: 56 Year
  Sex: Male

DRUGS (5)
  1. OMACOR (OMEGA-3 POLYUNSATURATED FATTY ACIDS)(OMEGA-3 POLYUNSATURATED F [Concomitant]
  2. NEBIVOLOL HCL [Suspect]
     Dosage: ORAL
     Route: 048
     Dates: start: 20050101, end: 20101229
  3. PLAVIX [Suspect]
     Dates: start: 20050101, end: 20101229
  4. PLAVIX [Suspect]
     Dates: start: 20110118
  5. EZETROL (EZETIMIBE)(EZETIMIBE) [Concomitant]

REACTIONS (9)
  - ARTHRALGIA [None]
  - LUPUS-LIKE SYNDROME [None]
  - FATIGUE [None]
  - SKIN LESION [None]
  - MITRAL VALVE INCOMPETENCE [None]
  - GLOMERULONEPHRITIS MEMBRANOUS [None]
  - OEDEMA PERIPHERAL [None]
  - NEPHROTIC SYNDROME [None]
  - BUTTERFLY RASH [None]
